FAERS Safety Report 10093442 (Version 2)
Quarter: 2014Q2

REPORT INFORMATION
  Report Type: Report from Study
  Country: JP (occurrence: JP)
  Receive Date: 20140421
  Receipt Date: 20140421
  Transmission Date: 20141212
  Serious: Yes (Hospitalization, Other)
  Sender: FDA-Public Use
  Company Number: JP-009507513-1307JPN004046

PATIENT
  Age: 72 Year
  Sex: Male
  Weight: 62 kg

DRUGS (3)
  1. JANUVIA TABLETS 50MG [Suspect]
     Indication: TYPE 2 DIABETES MELLITUS
     Dosage: 50 MG, QD
     Route: 048
     Dates: start: 20101216
  2. BLOPRESS [Concomitant]
     Indication: HYPERTENSION
     Dosage: 4 MG, QD
     Route: 048
  3. LOXONIN [Concomitant]
     Indication: BACK PAIN
     Dosage: 60 MG, TID
     Route: 048

REACTIONS (4)
  - Colon cancer [Recovered/Resolved]
  - Large intestine operation [Unknown]
  - Nasopharyngitis [Recovered/Resolved]
  - Meniscus injury [Recovered/Resolved]
